FAERS Safety Report 18556815 (Version 1)
Quarter: 2020Q4

REPORT INFORMATION
  Report Type: Spontaneous
  Country: DE (occurrence: DE)
  Receive Date: 20201128
  Receipt Date: 20201128
  Transmission Date: 20210114
  Serious: Yes (Life-Threatening, Other)
  Sender: FDA-Public Use
  Company Number: NVSC2020DE317419

PATIENT
  Age: 71 Year
  Sex: Female

DRUGS (10)
  1. FULVESTRANT. [Suspect]
     Active Substance: FULVESTRANT
     Indication: PRODUCT USED FOR UNKNOWN INDICATION
     Dosage: 500 MG, QMO (INJECTION)
     Route: 030
     Dates: start: 201711, end: 201908
  2. XGEVA [Concomitant]
     Active Substance: DENOSUMAB
     Indication: PRODUCT USED FOR UNKNOWN INDICATION
     Dosage: 120 MG, 4W
     Route: 042
     Dates: start: 201908, end: 202008
  3. BEVACIZUMAB. [Concomitant]
     Active Substance: BEVACIZUMAB
     Indication: PRODUCT USED FOR UNKNOWN INDICATION
     Dosage: 15 MG/KG, Q3W
     Route: 042
     Dates: start: 201908, end: 202008
  4. PALBOCICLIB [Suspect]
     Active Substance: PALBOCICLIB
     Indication: PRODUCT USED FOR UNKNOWN INDICATION
     Dosage: UNK (125 MG/DAY 1-14 Q3W)
     Route: 048
     Dates: start: 201711, end: 201908
  5. ARIMIDEX [Suspect]
     Active Substance: ANASTROZOLE
     Indication: PRODUCT USED FOR UNKNOWN INDICATION
     Dosage: UNK
     Route: 048
  6. CAPECITABINE. [Concomitant]
     Active Substance: CAPECITABINE
     Indication: PRODUCT USED FOR UNKNOWN INDICATION
     Dosage: UNK, Q12MO (1250 MG/M2 DAY 1-14 EVERY THREE WEEKS)
     Route: 065
     Dates: start: 201908, end: 202008
  7. EXEMESTANE. [Concomitant]
     Active Substance: EXEMESTANE
     Indication: PRODUCT USED FOR UNKNOWN INDICATION
     Dosage: 25 MG,QD
     Route: 048
     Dates: start: 201511, end: 201711
  8. TAMOXIFEN [Suspect]
     Active Substance: TAMOXIFEN
     Indication: PRODUCT USED FOR UNKNOWN INDICATION
     Dosage: 30 MG, QD
     Route: 048
     Dates: start: 201505, end: 201511
  9. DENOSUMAB [Concomitant]
     Active Substance: DENOSUMAB
     Indication: PRODUCT USED FOR UNKNOWN INDICATION
     Dosage: 120 MG, 4W
     Route: 065
     Dates: start: 201711, end: 201908
  10. EVEROLIMUS. [Concomitant]
     Active Substance: EVEROLIMUS
     Indication: PRODUCT USED FOR UNKNOWN INDICATION
     Dosage: 10 MG, QD
     Route: 048
     Dates: start: 201511, end: 201711

REACTIONS (8)
  - Glaucoma [Unknown]
  - Metastases to lung [Unknown]
  - Metastases to bone [Unknown]
  - Hypothyroidism [Unknown]
  - Metastases to liver [Unknown]
  - Aortic aneurysm [Unknown]
  - Hypertension [Unknown]
  - Atrial fibrillation [Unknown]

NARRATIVE: CASE EVENT DATE: 201501
